FAERS Safety Report 4807835-1 (Version None)
Quarter: 2005Q4

REPORT INFORMATION
  Report Type: 
  Country: None (occurrence: None)
  Receive Date: 20051021
  Receipt Date: 20051007
  Transmission Date: 20060501
  Serious: Yes (Hospitalization)
  Sender: FDA-Public Use
  Company Number: 2005S1009949

PATIENT
  Age: 84 Year
  Sex: Female
  Weight: 94 kg

DRUGS (2)
  1. FENTANYL [Suspect]
     Indication: OSTEOPOROSIS
     Dosage: 50 MCG/HR; TDER
     Route: 062
  2. FENTANYL [Suspect]
     Indication: PAIN
     Dosage: 50 MCG/HR; TDER
     Route: 062

REACTIONS (5)
  - DRUG EFFECT INCREASED [None]
  - FALL [None]
  - PAIN [None]
  - PNEUMONIA ASPIRATION [None]
  - SOMNOLENCE [None]
